FAERS Safety Report 25658243 (Version 2)
Quarter: 2025Q3

REPORT INFORMATION
  Report Type: Spontaneous
  Country: JP (occurrence: JP)
  Receive Date: 20250808
  Receipt Date: 20250814
  Transmission Date: 20251020
  Serious: Yes (Other)
  Sender: ROCHE
  Company Number: JP-CHUGAI-2025024555

PATIENT
  Age: 76 Year
  Sex: Female
  Weight: 47 kg

DRUGS (2)
  1. ACTEMRA [Suspect]
     Active Substance: TOCILIZUMAB
     Indication: Rheumatoid arthritis
     Route: 065
  2. METHOTREXATE [Concomitant]
     Active Substance: METHOTREXATE
     Indication: Rheumatoid arthritis
     Dosage: 6MG/WEEK
     Route: 065

REACTIONS (5)
  - Pulmonary fibrosis [Unknown]
  - Haemophilus infection [Unknown]
  - Lower respiratory tract infection [Unknown]
  - Interstitial lung disease [Unknown]
  - Pneumonia bacterial [Unknown]
